FAERS Safety Report 4754722-3 (Version None)
Quarter: 2005Q3

REPORT INFORMATION
  Report Type: 
  Country: None (occurrence: None)
  Receive Date: 20050829
  Receipt Date: 20050818
  Transmission Date: 20060218
  Serious: Yes (Hospitalization)
  Sender: FDA-Public Use
  Company Number: 200517349GDDC

PATIENT
  Age: 46 Year
  Sex: Female

DRUGS (2)
  1. DOCETAXEL [Suspect]
     Indication: BREAST CANCER
     Route: 042
     Dates: start: 20050804, end: 20050804
  2. CAPECITABINE [Suspect]
     Indication: BREAST CANCER
     Dosage: DOSE: 1500-2000
     Route: 048
     Dates: start: 20050804, end: 20050816

REACTIONS (1)
  - HICCUPS [None]
